FAERS Safety Report 9494985 (Version 9)
Quarter: 2014Q3

REPORT INFORMATION
  Report Type: Report from Study
  Country: US (occurrence: US)
  Receive Date: 20130903
  Receipt Date: 20140807
  Transmission Date: 20150326
  Serious: Yes (Other)
  Sender: FDA-Public Use
  Company Number: US-SANOFI-AVENTIS-2013SA086698

PATIENT
  Age: 59 Year
  Sex: Female
  Weight: 69.85 kg

DRUGS (8)
  1. CYMBALTA [Concomitant]
     Active Substance: DULOXETINE HYDROCHLORIDE
     Route: 065
  2. PROPRANOLOL [Concomitant]
     Active Substance: PROPRANOLOL\PROPRANOLOL HYDROCHLORIDE
     Route: 065
     Dates: start: 2010
  3. PRAVASTATIN [Concomitant]
     Active Substance: PRAVASTATIN\PRAVASTATIN SODIUM
     Dates: start: 2012
  4. AUBAGIO [Suspect]
     Active Substance: TERIFLUNOMIDE
     Indication: MULTIPLE SCLEROSIS
     Route: 048
     Dates: start: 20130527, end: 20140218
  5. AUBAGIO [Suspect]
     Active Substance: TERIFLUNOMIDE
     Indication: MULTIPLE SCLEROSIS
     Route: 048
     Dates: end: 20140521
  6. METFORMIN [Concomitant]
     Active Substance: METFORMIN HYDROCHLORIDE
     Route: 065
     Dates: start: 2012
  7. ALL OTHER THERAPEUTIC PRODUCTS [Concomitant]
     Active Substance: UNSPECIFIED INGREDIENT
     Indication: CHEST PAIN
     Route: 065
  8. LISINOPRIL. [Concomitant]
     Active Substance: LISINOPRIL
     Route: 065
     Dates: start: 2011

REACTIONS (22)
  - Pain [Unknown]
  - Scab [Unknown]
  - Tuberculin test positive [Not Recovered/Not Resolved]
  - Hypertension [Unknown]
  - Photophobia [Recovered/Resolved]
  - Oedema peripheral [Unknown]
  - Peripheral swelling [Not Recovered/Not Resolved]
  - Burning sensation [Unknown]
  - Joint swelling [Not Recovered/Not Resolved]
  - Acne [Unknown]
  - Burning sensation [Not Recovered/Not Resolved]
  - Pain in extremity [Recovering/Resolving]
  - Tooth disorder [Not Recovered/Not Resolved]
  - Migraine [Not Recovered/Not Resolved]
  - Pain [Not Recovered/Not Resolved]
  - Arthralgia [Not Recovered/Not Resolved]
  - Musculoskeletal stiffness [Not Recovered/Not Resolved]
  - Depression [Unknown]
  - Urticaria [Not Recovered/Not Resolved]
  - Eye discharge [Not Recovered/Not Resolved]
  - Hypoaesthesia [Not Recovered/Not Resolved]
  - Peripheral swelling [Unknown]

NARRATIVE: CASE EVENT DATE: 2013
